FAERS Safety Report 5566898-9 (Version None)
Quarter: 2007Q4

REPORT INFORMATION
  Report Type: 
  Country: None (occurrence: None)
  Receive Date: 20071219
  Receipt Date: 20061214
  Transmission Date: 20080405
  Serious: No
  Sender: FDA-Public Use
  Company Number: US-BRISTOL-MYERS SQUIBB COMPANY-13612866

PATIENT
  Age: 56 Year
  Sex: Female
  Weight: 113 kg

DRUGS (7)
  1. PRAVASTATIN SODIUM [Suspect]
     Indication: BLOOD CHOLESTEROL
     Route: 048
     Dates: start: 20060901
  2. BYETTA [Suspect]
     Indication: TYPE 2 DIABETES MELLITUS
     Route: 048
     Dates: start: 20060901
  3. DOXYCYCLINE [Suspect]
     Indication: INFECTION
     Route: 048
     Dates: start: 20060901
  4. FAMOTIDINE [Concomitant]
  5. METFORMIN HCL [Concomitant]
  6. GLIPIZIDE [Concomitant]
     Dates: start: 20060901
  7. ACTOS [Concomitant]
     Dates: end: 20060901

REACTIONS (4)
  - ABDOMINAL DISTENSION [None]
  - DIARRHOEA [None]
  - ERUCTATION [None]
  - NAUSEA [None]
